FAERS Safety Report 6638843-6 (Version None)
Quarter: 2010Q1

REPORT INFORMATION
  Report Type: 
  Country: None (occurrence: None)
  Receive Date: 20100317
  Receipt Date: 20100315
  Transmission Date: 20100710
  Serious: Yes (Death)
  Sender: FDA-Public Use
  Company Number: KR-ELI_LILLY_AND_COMPANY-KR201003001473

PATIENT
  Sex: Male
  Weight: 58 kg

DRUGS (7)
  1. PEMETREXED [Suspect]
     Indication: NON-SMALL CELL LUNG CANCER STAGE IIIB
     Dosage: 500 MG/M2, DAY ONE EVERY 21 DAYS
     Route: 042
     Dates: start: 20080407
  2. FOLIC ACID [Concomitant]
     Indication: PROPHYLAXIS
     Dosage: 1 MG, DAILY (1/D)
     Dates: start: 20080407
  3. VITAMIN B-12 [Concomitant]
     Indication: PROPHYLAXIS
     Dates: start: 20080407
  4. DEXAMETHASONE [Concomitant]
     Indication: PROPHYLAXIS
     Dosage: 1.5 MG, 2/D
     Dates: start: 20080407, end: 20080409
  5. DEXAMETHASONE [Concomitant]
     Dosage: 1.5 MG, 2/D
     Dates: start: 20080428, end: 20080430
  6. MOXIFLOXACIN HCL [Concomitant]
     Indication: PNEUMONIA
     Dosage: 400 MG, DAILY (1/D)
     Dates: start: 20080403, end: 20080408
  7. MOXIFLOXACIN HCL [Concomitant]
     Dosage: 436.8 MG, DAILY (1/D)
     Dates: start: 20080428, end: 20080506

REACTIONS (2)
  - PNEUMONIA [None]
  - PULMONARY EMBOLISM [None]
